FAERS Safety Report 6076425-8 (Version None)
Quarter: 2009Q1

REPORT INFORMATION
  Report Type: 
  Country: None (occurrence: None)
  Receive Date: 20090213
  Receipt Date: 20090205
  Transmission Date: 20090719
  Serious: Yes (Other)
  Sender: FDA-Public Use
  Company Number: US-JNJFOC-20090202364

PATIENT
  Age: 36 Year
  Sex: Male
  Weight: 95.26 kg

DRUGS (4)
  1. EXTRA STRENGTH TYLENOL [Suspect]
     Indication: HEADACHE
     Route: 048
  2. EXTRA STRENGTH TYLENOL [Suspect]
     Indication: INSOMNIA
     Route: 048
  3. UNSPECIFIED MEDICATION [Concomitant]
     Indication: HYPERSENSITIVITY
  4. MUCINEX [Concomitant]

REACTIONS (5)
  - HYPERSOMNIA [None]
  - INCORRECT DOSE ADMINISTERED [None]
  - POOR QUALITY SLEEP [None]
  - ROAD TRAFFIC ACCIDENT [None]
  - SOMNOLENCE [None]
